APPROVED DRUG PRODUCT: AYVAKIT
Active Ingredient: AVAPRITINIB
Strength: 100MG
Dosage Form/Route: TABLET;ORAL
Application: N212608 | Product #001
Applicant: BLUEPRINT MEDICINES CORP
Approved: Jan 9, 2020 | RLD: Yes | RS: No | Type: RX

PATENTS:
Patent 9944651 | Expires: Oct 15, 2034
Patent 9994575 | Expires: Oct 15, 2034
Patent 9200002 | Expires: Oct 15, 2034
Patent 11999744 | Expires: Apr 10, 2040
Patent 9200002 | Expires: Oct 15, 2034
Patent 12060354 | Expires: Mar 8, 2042
Patent 9944651 | Expires: Oct 15, 2034
Patent 9994575 | Expires: Oct 15, 2034
Patent 11964980 | Expires: Apr 10, 2040

EXCLUSIVITY:
Code: ODE-356 | Date: Jun 16, 2028
Code: ODE-366 | Date: Jan 9, 2027
Code: ODE-434 | Date: May 22, 2030